FAERS Safety Report 24956804 (Version 3)
Quarter: 2025Q1

REPORT INFORMATION
  Report Type: Spontaneous
  Country: IT (occurrence: IT)
  Receive Date: 20250211
  Receipt Date: 20250225
  Transmission Date: 20250409
  Serious: Yes (Life-Threatening, Hospitalization, Other)
  Sender: NOVARTIS
  Company Number: None

PATIENT
  Age: 60 Year
  Sex: Female

DRUGS (27)
  1. EVEROLIMUS [Suspect]
     Active Substance: EVEROLIMUS
     Indication: Acute myocardial infarction
     Route: 065
  2. EVEROLIMUS [Suspect]
     Active Substance: EVEROLIMUS
     Indication: Acute coronary syndrome
  3. FENTANYL [Interacting]
     Active Substance: FENTANYL
     Indication: Product used for unknown indication
     Route: 065
  4. TICAGRELOR [Interacting]
     Active Substance: TICAGRELOR
     Indication: Antiplatelet therapy
     Route: 065
  5. TICAGRELOR [Interacting]
     Active Substance: TICAGRELOR
     Indication: Acute coronary syndrome
     Route: 065
  6. TICAGRELOR [Interacting]
     Active Substance: TICAGRELOR
     Route: 065
  7. TICAGRELOR [Interacting]
     Active Substance: TICAGRELOR
     Route: 065
  8. ASPIRIN [Interacting]
     Active Substance: ASPIRIN
     Indication: Antiplatelet therapy
     Dosage: 100 MG, QD
     Route: 048
  9. ASPIRIN [Interacting]
     Active Substance: ASPIRIN
     Route: 042
  10. CANGRELOR TETRASODIUM [Suspect]
     Active Substance: CANGRELOR TETRASODIUM
     Indication: Antiplatelet therapy
     Route: 042
  11. CANGRELOR TETRASODIUM [Suspect]
     Active Substance: CANGRELOR TETRASODIUM
     Route: 042
  12. HEPARIN [Suspect]
     Active Substance: HEPARIN SODIUM
     Indication: Product used for unknown indication
     Route: 065
  13. MORPHINE [Interacting]
     Active Substance: MORPHINE
     Indication: Antiplatelet therapy
     Route: 042
  14. TIROFIBAN [Suspect]
     Active Substance: TIROFIBAN
     Indication: Antiplatelet therapy
     Route: 042
  15. TIROFIBAN [Suspect]
     Active Substance: TIROFIBAN
     Route: 042
  16. TIROFIBAN [Suspect]
     Active Substance: TIROFIBAN
     Route: 040
  17. TIROFIBAN [Suspect]
     Active Substance: TIROFIBAN
     Route: 040
  18. WARFARIN [Suspect]
     Active Substance: WARFARIN
     Indication: Antiplatelet therapy
     Route: 042
  19. RAMIPRIL [Concomitant]
     Active Substance: RAMIPRIL
     Indication: Product used for unknown indication
     Dosage: 5 MG, QD
     Route: 065
  20. RAMIPRIL [Concomitant]
     Active Substance: RAMIPRIL
     Dosage: 5 MG, QD
     Route: 065
  21. RAMIPRIL [Concomitant]
     Active Substance: RAMIPRIL
     Dosage: 5 MG, QD
     Route: 065
  22. BISOPROLOL [Concomitant]
     Active Substance: BISOPROLOL
     Indication: Product used for unknown indication
     Dosage: 2.5 MG, QD
     Route: 065
  23. BISOPROLOL [Concomitant]
     Active Substance: BISOPROLOL
     Dosage: 2.5 MG, QD
     Route: 065
  24. BISOPROLOL [Concomitant]
     Active Substance: BISOPROLOL
     Dosage: 2.5 MG, QD
     Route: 065
  25. ATORVASTATIN [Concomitant]
     Active Substance: ATORVASTATIN
     Indication: Product used for unknown indication
     Dosage: 80 MG, QD
     Route: 065
  26. ATORVASTATIN [Concomitant]
     Active Substance: ATORVASTATIN
     Dosage: 80 MG, QD
     Route: 065
  27. ATORVASTATIN [Concomitant]
     Active Substance: ATORVASTATIN
     Dosage: 80 MG, QD
     Route: 065

REACTIONS (17)
  - Drug interaction [Unknown]
  - Vascular stent thrombosis [Unknown]
  - Hypersensitivity [Unknown]
  - Drug level decreased [Unknown]
  - Hypotension [Unknown]
  - Rectal haemorrhage [Unknown]
  - Nausea [Unknown]
  - Colitis ischaemic [Unknown]
  - Acute myocardial infarction [Unknown]
  - Erythema [Unknown]
  - Electrocardiogram ST segment elevation [Unknown]
  - Eosinophilia [Unknown]
  - Thrombocytopenia [Unknown]
  - Eosinophil cationic protein increased [Unknown]
  - Product use in unapproved indication [Unknown]
  - Labelled drug-drug interaction medication error [Unknown]
  - Off label use [Unknown]
